FAERS Safety Report 5639387-0 (Version None)
Quarter: 2008Q1

REPORT INFORMATION
  Report Type: 
  Country: None (occurrence: None)
  Receive Date: 20080226
  Receipt Date: 20080214
  Transmission Date: 20080703
  Serious: Yes (Other)
  Sender: FDA-Public Use
  Company Number: JP-PFIZER INC-2007107536

PATIENT
  Sex: Female

DRUGS (5)
  1. ZOLOFT [Suspect]
     Route: 048
  2. LEXOTAN [Concomitant]
     Route: 048
  3. ALPRAZOLAM [Concomitant]
     Route: 048
  4. WYPAX [Concomitant]
  5. ALL OTHER THERAPEUTIC PRODUCTS [Concomitant]

REACTIONS (7)
  - ABDOMINAL PAIN UPPER [None]
  - BLOOD PRESSURE FLUCTUATION [None]
  - CONSTIPATION [None]
  - MALAISE [None]
  - SOMNOLENCE [None]
  - THIRST [None]
  - TREMOR [None]
